FAERS Safety Report 6904013-7 (Version None)
Quarter: 2010Q3

REPORT INFORMATION
  Report Type: 
  Country: None (occurrence: None)
  Receive Date: 20100804
  Receipt Date: 20090305
  Transmission Date: 20110219
  Serious: Yes (Other)
  Sender: FDA-Public Use
  Company Number: US-PFIZER INC-2009157415

PATIENT
  Sex: Male

DRUGS (1)
  1. LYRICA [Suspect]
     Indication: PARTIAL SEIZURES
     Dosage: 50 MG, 1X/DAY
     Route: 048
     Dates: start: 20080801

REACTIONS (2)
  - NECK PAIN [None]
  - PARTIAL SEIZURES [None]
